FAERS Safety Report 5239005-X (Version None)
Quarter: 2007Q1

REPORT INFORMATION
  Report Type: 
  Country: None (occurrence: None)
  Receive Date: 20070209
  Receipt Date: 20070130
  Transmission Date: 20070707
  Serious: Yes (Other)
  Sender: FDA-Public Use
  Company Number: 235630

PATIENT
  Age: 67 Year
  Sex: Female

DRUGS (1)
  1. AVASTIN [Suspect]
     Indication: MACULAR DEGENERATION
     Dosage: SINGLE
     Dates: start: 20061208

REACTIONS (6)
  - DRUG INEFFECTIVE [None]
  - EYE PAIN [None]
  - OCULAR HYPERAEMIA [None]
  - PHOTOPHOBIA [None]
  - VISION BLURRED [None]
  - VISUAL ACUITY REDUCED [None]
